FAERS Safety Report 8531427-4 (Version None)
Quarter: 2012Q3

REPORT INFORMATION
  Report Type: 
  Country: None (occurrence: None)
  Receive Date: 20120723
  Receipt Date: 20120702
  Transmission Date: 20120928
  Serious: Yes (Death, Disabling, Congenital Anomaly, Other)
  Sender: FDA-Public Use
  Company Number: DK-009507513-2011SP060150

PATIENT

DRUGS (2)
  1. TRILAFON [Suspect]
     Indication: PSYCHOTIC DISORDER
     Dosage: UNK UNK, UNKNOWN
     Route: 064
  2. FLUOXETINE HCL [Suspect]
     Dosage: UNK UNK, UNKNOWN
     Route: 064

REACTIONS (9)
  - HYPOKINESIA [None]
  - DYSPHAGIA [None]
  - FOETAL EXPOSURE DURING PREGNANCY [None]
  - MILD MENTAL RETARDATION [None]
  - ASOCIAL BEHAVIOUR [None]
  - SPEECH DISORDER DEVELOPMENTAL [None]
  - ASPHYXIA [None]
  - FINE MOTOR DELAY [None]
  - COGNITIVE DISORDER [None]
